FAERS Safety Report 6369927-8 (Version None)
Quarter: 2009Q3

REPORT INFORMATION
  Report Type: 
  Country: None (occurrence: None)
  Receive Date: 20090923
  Receipt Date: 20070911
  Transmission Date: 20100115
  Serious: No
  Sender: FDA-Public Use
  Company Number: US-ASTRAZENECA-2006UW10523

PATIENT
  Age: 520 Month
  Sex: Female
  Weight: 129.3 kg

DRUGS (24)
  1. SEROQUEL [Suspect]
     Indication: BIPOLAR DISORDER
     Dosage: 25-400 MG
     Route: 048
     Dates: start: 20030101
  2. SEROQUEL [Suspect]
     Indication: MAJOR DEPRESSION
     Dosage: 25-400 MG
     Route: 048
     Dates: start: 20030101
  3. SEROQUEL [Suspect]
     Indication: ANXIETY
     Dosage: 25-400 MG
     Route: 048
     Dates: start: 20030101
  4. SEROQUEL [Suspect]
     Indication: AGITATION
     Dosage: 25-400 MG
     Route: 048
     Dates: start: 20030101
  5. TRAMADOL HCL [Concomitant]
  6. EFFEXOR [Concomitant]
  7. LITHIUM [Concomitant]
  8. TOPAMAX [Concomitant]
  9. SYNTHROID [Concomitant]
  10. METFORMIN HCL [Concomitant]
  11. KLONOPIN [Concomitant]
  12. PREMPHASE 14/14 [Concomitant]
  13. VISTARIL [Concomitant]
  14. CYTOMEL [Concomitant]
  15. PHENAZOPYRID [Concomitant]
  16. LASIX [Concomitant]
  17. TRAZODONE [Concomitant]
  18. DESOGEN [Concomitant]
  19. RANITIDINE [Concomitant]
  20. BUSPAR [Concomitant]
  21. CLARITIN [Concomitant]
  22. CELEXA [Concomitant]
  23. DEPAKOTE [Concomitant]
  24. BETAMETHASONE [Concomitant]

REACTIONS (1)
  - DIABETES MELLITUS [None]
